FAERS Safety Report 23042641 (Version 3)
Quarter: 2023Q4

REPORT INFORMATION
  Report Type: Report from Study
  Country: JP (occurrence: JP)
  Receive Date: 20231009
  Receipt Date: 20231122
  Transmission Date: 20240110
  Serious: Yes (Other)
  Sender: FDA-Public Use
  Company Number: JP-TAKEDA-2023TJP012861

PATIENT
  Age: 80 Year
  Sex: Male

DRUGS (1)
  1. LEUPLIN [Suspect]
     Active Substance: LEUPROLIDE ACETATE
     Indication: Bulbospinal muscular atrophy congenital
     Dosage: 11.25 MILLIGRAM, Q3MONTHS?LEUPLIN SR
     Route: 065

REACTIONS (5)
  - Panniculitis [Recovering/Resolving]
  - Administration site ulcer [Unknown]
  - Administration site induration [Unknown]
  - Injection site panniculitis [Unknown]
  - Panniculitis [Recovering/Resolving]
